FAERS Safety Report 13432976 (Version 2)
Quarter: 2017Q2

REPORT INFORMATION
  Report Type: Report from Study
  Country: US (occurrence: US)
  Receive Date: 20170412
  Receipt Date: 20170501
  Transmission Date: 20170830
  Serious: No
  Sender: FDA-Public Use
  Company Number: US-009507513-1703USA014404

PATIENT
  Age: 57 Year
  Sex: Male

DRUGS (9)
  1. JANUMET XR [Suspect]
     Active Substance: METFORMIN HYDROCHLORIDE\SITAGLIPTIN PHOSPHATE
     Dosage: 50/500MG, BID
     Route: 048
     Dates: start: 20170314
  2. HYDROCHLOROTHIAZIDE. [Concomitant]
     Active Substance: HYDROCHLOROTHIAZIDE
  3. JANUMET [Suspect]
     Active Substance: METFORMIN HYDROCHLORIDE\SITAGLIPTIN PHOSPHATE
     Route: 048
  4. ATENOLOL. [Concomitant]
     Active Substance: ATENOLOL
  5. ZOCOR [Concomitant]
     Active Substance: SIMVASTATIN
  6. JANUMET XR [Suspect]
     Active Substance: METFORMIN HYDROCHLORIDE\SITAGLIPTIN PHOSPHATE
     Indication: DIABETES MELLITUS
     Dosage: 50/1000MG, BID
     Route: 048
  7. JANUMET XR [Suspect]
     Active Substance: METFORMIN HYDROCHLORIDE\SITAGLIPTIN PHOSPHATE
     Indication: DIABETES MELLITUS
     Dosage: 50/500MG, BID
     Route: 048
     Dates: start: 201203
  8. GLIPIZIDE. [Concomitant]
     Active Substance: GLIPIZIDE
  9. PRINIVIL [Concomitant]
     Active Substance: LISINOPRIL

REACTIONS (5)
  - Drug ineffective [Recovered/Resolved]
  - Product use issue [Unknown]
  - Drug prescribing error [Unknown]
  - Blood glucose increased [Unknown]
  - Product use issue [Unknown]

NARRATIVE: CASE EVENT DATE: 201203
